FAERS Safety Report 6050171-9 (Version None)
Quarter: 2009Q1

REPORT INFORMATION
  Report Type: 
  Country: None (occurrence: None)
  Receive Date: 20090122
  Receipt Date: 20090122
  Transmission Date: 20090719
  Serious: Yes (Hospitalization)
  Sender: FDA-Public Use
  Company Number: None

PATIENT
  Sex: Female
  Weight: 115.9 kg

DRUGS (3)
  1. FLUOROURACIL [Suspect]
     Dosage: 6475 MG
     Dates: start: 20090102, end: 20090105
  2. LEUCOVORIN CALCIUM [Suspect]
     Dosage: 925 MG
     Dates: end: 20090102
  3. ELOXATIN [Suspect]
     Dosage: 196 MG
     Dates: end: 20090102

REACTIONS (14)
  - ABDOMINAL PAIN UPPER [None]
  - ANASTOMOTIC COMPLICATION [None]
  - COLITIS [None]
  - COLONOSCOPY ABNORMAL [None]
  - DRUG INEFFECTIVE [None]
  - ENTERITIS [None]
  - ERYTHEMA [None]
  - GASTROENTERITIS [None]
  - INFLAMMATION [None]
  - INTESTINAL OBSTRUCTION [None]
  - NODULE [None]
  - OVARIAN CYST [None]
  - PALLOR [None]
  - TENDERNESS [None]
